FAERS Safety Report 22332010 (Version 1)
Quarter: 2023Q2

REPORT INFORMATION
  Report Type: Spontaneous
  Country: US (occurrence: US)
  Receive Date: 20230517
  Receipt Date: 20230517
  Transmission Date: 20230721
  Serious: No
  Sender: FDA-Public Use
  Company Number: US-BRISTOL-MYERS SQUIBB COMPANY-2023-068661

PATIENT

DRUGS (1)
  1. CAMZYOS [Suspect]
     Active Substance: MAVACAMTEN
     Indication: Hypertrophic cardiomyopathy
     Dosage: DOSE : 5 MG;     FREQ : 5 MG DAILY
     Route: 048

REACTIONS (3)
  - Incontinence [Recovered/Resolved]
  - Micturition urgency [Recovered/Resolved]
  - Urethral pain [Recovered/Resolved]

NARRATIVE: CASE EVENT DATE: 20230501
